FAERS Safety Report 13731453 (Version 1)
Quarter: 2017Q3

REPORT INFORMATION
  Report Type: Spontaneous
  Country: US (occurrence: US)
  Receive Date: 20170707
  Receipt Date: 20170707
  Transmission Date: 20171127
  Serious: Yes (Other)
  Sender: FDA-Public Use
  Company Number: US-ASTRAZENECA-2017SE68582

PATIENT
  Age: 52 Year
  Sex: Female
  Weight: 54.4 kg

DRUGS (3)
  1. ARIMIDEX [Suspect]
     Active Substance: ANASTROZOLE
     Indication: BREAST CANCER
     Route: 048
     Dates: start: 2013, end: 20170628
  2. ARIMIDEX [Suspect]
     Active Substance: ANASTROZOLE
     Indication: BREAST CANCER
     Route: 048
     Dates: start: 200205, end: 200605
  3. XANAX [Concomitant]
     Active Substance: ALPRAZOLAM
     Dosage: 1MG EVERY OTHER NIGHT WITH THE MOTRIN
     Route: 048

REACTIONS (12)
  - Breast cancer stage IV [Not Recovered/Not Resolved]
  - Bone pain [Recovered/Resolved]
  - Arthralgia [Not Recovered/Not Resolved]
  - Scoliosis [Not Recovered/Not Resolved]
  - Dizziness [Not Recovered/Not Resolved]
  - Radiation injury [None]
  - Thermal burn [Recovered/Resolved]
  - Blister [Recovered/Resolved]
  - Erythema [Not Recovered/Not Resolved]
  - Body height decreased [Unknown]
  - Arthritis [Not Recovered/Not Resolved]
  - Myalgia [Unknown]

NARRATIVE: CASE EVENT DATE: 2002
